FAERS Safety Report 5253169-3 (Version None)
Quarter: 2007Q1

REPORT INFORMATION
  Report Type: 
  Country: None (occurrence: None)
  Receive Date: 20070301
  Receipt Date: 20070216
  Transmission Date: 20070707
  Serious: Yes (Hospitalization)
  Sender: FDA-Public Use
  Company Number: PHHO2007US03296

PATIENT
  Age: 50 Year
  Sex: Male
  Weight: 71.201 kg

DRUGS (4)
  1. PROGRAF [Suspect]
     Dosage: 3 MG, BID
     Route: 048
     Dates: start: 20061021, end: 20070129
  2. RAPAMUNE [Suspect]
     Dosage: 4 MG/DAY
     Route: 048
     Dates: start: 20070130, end: 20070213
  3. RAPAMUNE [Suspect]
     Dosage: 2 MG/DAY
     Route: 048
     Dates: start: 20070214
  4. MYCOPHENOLIC ACID [Suspect]
     Indication: RENAL TRANSPLANT
     Dosage: 720 MG, BID
     Route: 048
     Dates: end: 20070214

REACTIONS (5)
  - ASTHENIA [None]
  - DYSPNOEA [None]
  - INTUBATION [None]
  - PNEUMONIA [None]
  - STOMATITIS [None]
